FAERS Safety Report 13409242 (Version 5)
Quarter: 2023Q4

REPORT INFORMATION
  Report Type: Spontaneous
  Country: US (occurrence: US)
  Receive Date: 20170406
  Receipt Date: 20231129
  Transmission Date: 20240109
  Serious: No
  Sender: FDA-Public Use
  Company Number: US-JNJFOC-20170117293

PATIENT
  Age: 6 Year
  Sex: Male

DRUGS (22)
  1. RISPERDAL [Suspect]
     Active Substance: RISPERIDONE
     Indication: Autism spectrum disorder
     Route: 048
     Dates: start: 20051028, end: 20060116
  2. RISPERDAL [Suspect]
     Active Substance: RISPERIDONE
     Indication: Obsessive-compulsive disorder
     Dosage: VARYING DOSES OF 0.25 MG AND 0.5 MG
     Route: 048
     Dates: start: 20060720
  3. RISPERDAL [Suspect]
     Active Substance: RISPERIDONE
     Indication: Behaviour disorder
     Route: 048
     Dates: start: 2007
  4. RISPERDAL [Suspect]
     Active Substance: RISPERIDONE
     Route: 048
     Dates: start: 20100907
  5. RISPERDAL [Suspect]
     Active Substance: RISPERIDONE
     Route: 048
     Dates: start: 20110613
  6. RISPERDAL [Suspect]
     Active Substance: RISPERIDONE
     Dosage: DOSE UNSPECIFIED 5 TIMES IN PAST 24 HOURS
     Route: 048
     Dates: start: 201307, end: 2013
  7. RISPERDAL [Suspect]
     Active Substance: RISPERIDONE
     Route: 048
     Dates: start: 20130920
  8. RISPERDAL [Suspect]
     Active Substance: RISPERIDONE
     Route: 048
     Dates: end: 20150905
  9. RISPERDAL [Suspect]
     Active Substance: RISPERIDONE
     Indication: Autism spectrum disorder
     Route: 048
     Dates: start: 20051028, end: 20060116
  10. RISPERIDONE [Suspect]
     Active Substance: RISPERIDONE
     Indication: Autism spectrum disorder
     Route: 048
     Dates: start: 20090601
  11. RISPERIDONE [Suspect]
     Active Substance: RISPERIDONE
     Indication: Behaviour disorder
     Dosage: VARYING DOSES OF 0.5 MG AND 01 MG AND VARYING FREQUENCY INCLUDED (UNSPECIFIED DOSE AND TWICE DAILY)
     Route: 048
     Dates: start: 20090824, end: 20100624
  12. RISPERIDONE [Suspect]
     Active Substance: RISPERIDONE
     Dosage: VARYING DOSES OF 0.5 MG AND 01 MG AND VARYING FREQUENCY INCLUDED (UNSPECIFIED DOSE AND TWICE DAILY)
     Route: 048
     Dates: start: 20101005, end: 20110510
  13. RISPERIDONE [Suspect]
     Active Substance: RISPERIDONE
     Dosage: VARYING DOSES OF 0.5 MG AND 01 MG AND VARYING FREQUENCY INCLUDED (UNSPECIFIED DOSE AND TWICE DAILY)
     Route: 048
     Dates: start: 20110720, end: 20130717
  14. RISPERIDONE [Suspect]
     Active Substance: RISPERIDONE
     Route: 048
     Dates: end: 2013
  15. RISPERIDONE [Suspect]
     Active Substance: RISPERIDONE
     Dosage: VARYING DOSES OF 0.5 MG AND 01 MG AND VARYING FREQUENCY INCLUDED (UNSPECIFIED DOSE AND TWICE DAILY)
     Route: 048
     Dates: start: 20131105, end: 20150905
  16. RISPERDAL M-TAB [Suspect]
     Active Substance: RISPERIDONE
     Indication: Autism spectrum disorder
     Route: 048
     Dates: start: 20090717
  17. RISPERDAL M-TAB [Suspect]
     Active Substance: RISPERIDONE
     Indication: Agitation
  18. INVEGA [Suspect]
     Active Substance: PALIPERIDONE
     Indication: Autism spectrum disorder
     Route: 048
  19. INVEGA [Suspect]
     Active Substance: PALIPERIDONE
     Indication: Behaviour disorder
     Dosage: VARYING DOSES OF 06 MG AND 09 MG
     Route: 048
     Dates: start: 20160122, end: 20160523
  20. INVEGA [Suspect]
     Active Substance: PALIPERIDONE
     Indication: Agitation
     Route: 048
     Dates: start: 2016
  21. ABILIFY [Suspect]
     Active Substance: ARIPIPRAZOLE
     Indication: Product used for unknown indication
     Route: 065
  22. RISPERIDONE [Suspect]
     Active Substance: RISPERIDONE
     Indication: Product used for unknown indication
     Route: 048

REACTIONS (11)
  - Obesity [Unknown]
  - Emotional distress [Unknown]
  - Gynaecomastia [Unknown]
  - Agitation [Unknown]
  - Tremor [Unknown]
  - Increased appetite [Unknown]
  - Dysphagia [Unknown]
  - Drug ineffective [Unknown]
  - Off label use [Unknown]
  - Off label use [Unknown]
  - Product use in unapproved indication [Unknown]

NARRATIVE: CASE EVENT DATE: 20051028
